FAERS Safety Report 9113851 (Version 1)
Quarter: 2013Q1

REPORT INFORMATION
  Report Type: Spontaneous
  Country: DE (occurrence: DE)
  Receive Date: 20130208
  Receipt Date: 20130208
  Transmission Date: 20140127
  Serious: Yes (Other)
  Sender: FDA-Public Use
  Company Number: DE-PFIZER INC-2013050017

PATIENT
  Age: 48 Year
  Sex: Male
  Weight: 93 kg

DRUGS (2)
  1. SORTIS [Suspect]
     Indication: HYPERCHOLESTEROLAEMIA
     Dosage: 10 MG, 1X/DAY
     Route: 048
     Dates: start: 20111101, end: 20130124
  2. THYRONAJOD [Concomitant]
     Indication: HYPOTHYROIDISM
     Dosage: 100 UG, 1X/DAY
     Route: 048
     Dates: start: 20090415, end: 20130130

REACTIONS (2)
  - Dyspnoea [Recovering/Resolving]
  - Hand dermatitis [Recovering/Resolving]
